FAERS Safety Report 5915871-7 (Version None)
Quarter: 2008Q4

REPORT INFORMATION
  Report Type: 
  Country: None (occurrence: None)
  Receive Date: 20081010
  Receipt Date: 20081003
  Transmission Date: 20090506
  Serious: Yes (Other)
  Sender: FDA-Public Use
  Company Number: IE-PFIZER INC-2008084214

PATIENT
  Sex: Female

DRUGS (1)
  1. LYRICA [Suspect]
     Indication: BACK INJURY
     Route: 048

REACTIONS (5)
  - CONFUSIONAL STATE [None]
  - DEPRESSION [None]
  - PALPITATIONS [None]
  - SPEECH DISORDER [None]
  - SUICIDAL IDEATION [None]
